FAERS Safety Report 8344353-0 (Version None)
Quarter: 2012Q2

REPORT INFORMATION
  Report Type: 
  Country: None (occurrence: None)
  Receive Date: 20120508
  Receipt Date: 20120426
  Transmission Date: 20120825
  Serious: Yes (Hospitalization)
  Sender: FDA-Public Use
  Company Number: RO-ROCHE-1066481

PATIENT
  Sex: Female
  Weight: 56.5 kg

DRUGS (5)
  1. CALCIUM CHLORIDE [Concomitant]
     Dates: start: 20120210
  2. PEGASYS [Suspect]
     Indication: HEPATITIS C
     Dates: start: 20111227, end: 20120327
  3. BLINDED ALISPORIVIR [Suspect]
     Indication: HEPATITIS C
     Route: 048
     Dates: start: 20111127, end: 20120326
  4. COPEGUS [Suspect]
     Indication: HEPATITIS C
     Dosage: 400 MG IN MORNING, 600 MG IN EVENING
     Route: 048
     Dates: start: 20111227, end: 20120326
  5. ASCORBIC ACID [Concomitant]
     Dates: start: 20120216

REACTIONS (2)
  - PULMONARY FIBROSIS [None]
  - CONCOMITANT DISEASE PROGRESSION [None]
